FAERS Safety Report 7325522-5 (Version None)
Quarter: 2011Q1

REPORT INFORMATION
  Report Type: 
  Country: None (occurrence: None)
  Receive Date: 20110302
  Receipt Date: 20110218
  Transmission Date: 20110831
  Serious: Yes (Other)
  Sender: FDA-Public Use
  Company Number: US-ELI_LILLY_AND_COMPANY-US201102006355

PATIENT
  Sex: Female

DRUGS (1)
  1. FORTEO [Suspect]
     Indication: OSTEOPOROSIS
     Dosage: 20 UG, DAILY (1/D)
     Dates: start: 20110201, end: 20110213

REACTIONS (10)
  - THROMBOSIS [None]
  - FEELING ABNORMAL [None]
  - MALAISE [None]
  - CRYING [None]
  - MEMORY IMPAIRMENT [None]
  - SOMNOLENCE [None]
  - GAIT DISTURBANCE [None]
  - DEPRESSION [None]
  - FATIGUE [None]
  - MUSCULAR WEAKNESS [None]
